FAERS Safety Report 12918990 (Version 1)
Quarter: 2016Q4

REPORT INFORMATION
  Report Type: Spontaneous
  Country: US (occurrence: US)
  Receive Date: 20161108
  Receipt Date: 20161108
  Transmission Date: 20170207
  Serious: No
  Sender: FDA-Public Use
  Company Number: US-009507513-1611USA003103

PATIENT
  Age: 57 Year
  Sex: Male

DRUGS (1)
  1. ASMANEX [Suspect]
     Active Substance: MOMETASONE FUROATE
     Indication: ASTHMA
     Route: 048

REACTIONS (2)
  - Complication associated with device [Unknown]
  - Cough [Unknown]

NARRATIVE: CASE EVENT DATE: 201610
